FAERS Safety Report 8926713 (Version 1)
Quarter: 2012Q4

REPORT INFORMATION
  Report Type: 
  Country: GB (occurrence: GB)
  Receive Date: 20121127
  Receipt Date: 20121127
  Transmission Date: 20130627
  Serious: Yes (Other)
  Sender: FDA-Public Use
  Company Number: GB-PFIZER INC-2012294656

PATIENT
  Age: 78 Year
  Sex: Male
  Weight: 84 kg

DRUGS (5)
  1. RAMIPRIL [Suspect]
     Indication: HYPERTENSION
     Dosage: 5 mg, UNK
     Route: 048
     Dates: start: 20100803, end: 20121002
  2. ATENOLOL [Concomitant]
     Indication: HYPERTENSION
     Dosage: 50mg, UNK
     Route: 048
  3. ASPIRIN [Concomitant]
     Indication: ISCHAEMIC HEART DISEASE
     Dosage: 75 mg, UNK
     Route: 048
  4. NICORANDIL [Concomitant]
     Indication: ISCHAEMIC HEART DISEASE
     Dosage: 5 mg, UNK
     Route: 048
  5. SIMVASTATIN [Concomitant]
     Indication: ISCHAEMIC HEART DISEASE
     Dosage: 20 mg, UNK
     Route: 048

REACTIONS (3)
  - Fatigue [Recovered/Resolved]
  - Rhinorrhoea [Recovered/Resolved]
  - Bronchospasm [Recovered/Resolved]
